FAERS Safety Report 4321726-4 (Version None)
Quarter: 2004Q1

REPORT INFORMATION
  Report Type: 
  Country: None (occurrence: None)
  Receive Date: 20040322
  Receipt Date: 20031119
  Transmission Date: 20041129
  Serious: No
  Sender: FDA-Public Use
  Company Number: US-BRISTOL-MYERS SQUIBB COMPANY-12440343

PATIENT
  Age: 21 Year
  Sex: Female

DRUGS (1)
  1. MONISTAT [Suspect]
     Indication: FUNGAL INFECTION
     Route: 067
     Dates: start: 20031117, end: 20031117

REACTIONS (2)
  - ABDOMINAL PAIN [None]
  - PREGNANCY [None]
